FAERS Safety Report 5534274-0 (Version None)
Quarter: 2007Q4

REPORT INFORMATION
  Report Type: 
  Country: None (occurrence: None)
  Receive Date: 20071205
  Receipt Date: 20071126
  Transmission Date: 20080405
  Serious: Yes (Hospitalization)
  Sender: FDA-Public Use
  Company Number: US-ROCHE-533567

PATIENT
  Age: 53 Year
  Sex: Male

DRUGS (14)
  1. ZENAPAX [Suspect]
     Indication: DRUG USE FOR UNKNOWN INDICATION
     Route: 065
  2. ACYCLOVIR [Concomitant]
  3. ASPIRIN [Concomitant]
  4. CLONIDINE [Concomitant]
  5. DOCUSATE [Concomitant]
  6. FAMOTIDINE [Concomitant]
  7. HEPARIN [Concomitant]
  8. KEPPRA [Concomitant]
  9. CELLCEPT [Concomitant]
  10. PRAVACHOL [Concomitant]
  11. PREDNISONE TAB [Concomitant]
  12. SENNA [Concomitant]
  13. BACTRIM [Concomitant]
  14. CLOTRIMAZOL [Concomitant]

REACTIONS (2)
  - ABNORMAL BEHAVIOUR [None]
  - CONVULSION [None]
